FAERS Safety Report 15837119 (Version 1)
Quarter: 2019Q1

REPORT INFORMATION
  Report Type: Spontaneous
  Country: US (occurrence: US)
  Receive Date: 20190117
  Receipt Date: 20190117
  Transmission Date: 20190417
  Serious: Yes (Hospitalization)
  Sender: FDA-Public Use
  Company Number: None

PATIENT
  Age: 63 Year
  Sex: Male
  Weight: 97 kg

DRUGS (2)
  1. OCREVUS [Concomitant]
     Active Substance: OCRELIZUMAB
     Dates: start: 20171101, end: 20181115
  2. OCREVUS [Suspect]
     Active Substance: OCRELIZUMAB
     Indication: MULTIPLE SCLEROSIS
     Dosage: ?          OTHER FREQUENCY:Q 6 MTH;?
     Route: 042
     Dates: start: 20171101, end: 20181115

REACTIONS (7)
  - Fatigue [None]
  - Hyperhidrosis [None]
  - Chromaturia [None]
  - Sedation [None]
  - Infusion related reaction [None]
  - Arthralgia [None]
  - Chills [None]

NARRATIVE: CASE EVENT DATE: 20181128
